FAERS Safety Report 10511733 (Version 1)
Quarter: 2014Q3

REPORT INFORMATION
  Report Type: Spontaneous
  Country: US (occurrence: None)
  Receive Date: 20140926
  Receipt Date: 20140926
  Transmission Date: 20150326
  Serious: No
  Sender: FDA-Public Use
  Company Number: 1000068423

PATIENT
  Age: 82 Year
  Sex: Female

DRUGS (2)
  1. LINZESS [Suspect]
     Active Substance: LINACLOTIDE
     Indication: CONSTIPATION
     Dosage: 145 MCG (145 MCG, 1IN 1 D), ORAL
     Route: 048
     Dates: start: 201406, end: 201406
  2. VICODIN (ACETAMINOPHEN, HYDROCODOEN) (ACETAMINOPHEN, HYDROCODONE)? [Concomitant]

REACTIONS (1)
  - Flatulence [None]

NARRATIVE: CASE EVENT DATE: 201406
